FAERS Safety Report 11381611 (Version 1)
Quarter: 2015Q3

REPORT INFORMATION
  Report Type: Spontaneous
  Country: US (occurrence: US)
  Receive Date: 20150814
  Receipt Date: 20150814
  Transmission Date: 20151125
  Serious: No
  Sender: FDA-Public Use
  Company Number: US-009507513-1508USA001035

PATIENT
  Age: 32 Year
  Sex: Female
  Weight: 79.37 kg

DRUGS (1)
  1. NUVARING [Suspect]
     Active Substance: ETHINYL ESTRADIOL\ETONOGESTREL
     Indication: CONTRACEPTION
     Dosage: 1 RING/ 3 WEEK USE (1 DF, Q3W)
     Route: 067
     Dates: start: 2014, end: 20150731

REACTIONS (2)
  - Device expulsion [Unknown]
  - Vulvovaginal burning sensation [Unknown]

NARRATIVE: CASE EVENT DATE: 20150730
